FAERS Safety Report 9831633 (Version 1)
Quarter: 2014Q1

REPORT INFORMATION
  Report Type: Spontaneous
  Country: US (occurrence: US)
  Receive Date: 20140121
  Receipt Date: 20140121
  Transmission Date: 20141002
  Serious: Yes (Other)
  Sender: FDA-Public Use
  Company Number: US-PFIZER INC-2014017268

PATIENT
  Age: 51 Year
  Sex: Male
  Weight: 127 kg

DRUGS (2)
  1. GEODON [Suspect]
     Indication: SCHIZOPHRENIA
     Dosage: 80MG IN MORNING AND 160MG IN NIGHT
  2. PROZAC [Concomitant]
     Indication: DEPRESSION
     Dosage: 20 MG, DAILY

REACTIONS (1)
  - Blood glucose increased [Not Recovered/Not Resolved]
